FAERS Safety Report 8556663 (Version 3)
Quarter: 2012Q4

REPORT INFORMATION
  Report Type: 
  Country: US (occurrence: US)
  Receive Date: 20120510
  Receipt Date: 20120927
  Transmission Date: 20130627
  Serious: Yes (Other)
  Sender: FDA-Public Use
  Company Number: US-ASTRAZENECA-2012SE28706

PATIENT
  Age: 63 Year
  Sex: Female
  Weight: 87 kg

DRUGS (2)
  1. ARIMIDEX [Suspect]
     Route: 048
  2. FASLODEX [Suspect]
     Route: 030

REACTIONS (4)
  - Recurrent cancer [Unknown]
  - Metastases to liver [Unknown]
  - Hepatic lesion [Unknown]
  - Disease progression [Unknown]
